FAERS Safety Report 22250695 (Version 2)
Quarter: 2023Q2

REPORT INFORMATION
  Report Type: Spontaneous
  Country: DE (occurrence: DE)
  Receive Date: 20230425
  Receipt Date: 20230427
  Transmission Date: 20230721
  Serious: Yes (Other)
  Sender: FDA-Public Use
  Company Number: DE-002147023-NVSC2023DE085467

PATIENT
  Sex: Male

DRUGS (10)
  1. PANTOPRAZOLE [Suspect]
     Active Substance: PANTOPRAZOLE
     Dosage: 1 DOSAGE FORM, QD
     Route: 065
  2. METOPROLOL [Suspect]
     Active Substance: METOPROLOL
     Dosage: 2 DOSAGE FORM, BID
     Route: 065
  3. TORSEMIDE [Suspect]
     Active Substance: TORSEMIDE
     Dosage: 1 DOSAGE FORM, QD
     Route: 065
  4. MAGNESIUM [Suspect]
     Active Substance: MAGNESIUM
     Dosage: 3 DOSAGE FORM, QD
     Route: 065
  5. NALOXONE HYDROCHLORIDE\TILIDINE HYDROCHLORIDE [Suspect]
     Active Substance: NALOXONE HYDROCHLORIDE\TILIDINE HYDROCHLORIDE
     Indication: Pain
     Dosage: 4 DOSAGE FORM, QD
     Route: 065
  6. NALOXONE HYDROCHLORIDE\TILIDINE HYDROCHLORIDE [Suspect]
     Active Substance: NALOXONE HYDROCHLORIDE\TILIDINE HYDROCHLORIDE
     Dosage: 2 DOSAGE FORM, BID
     Route: 065
  7. POTASSIUM CHLORIDE [Suspect]
     Active Substance: POTASSIUM CHLORIDE
     Dosage: 1.56 GRAM, QD
     Route: 065
  8. DIGITOXIN [Suspect]
     Active Substance: DIGITOXIN
     Dosage: 1 DOSAGE FORM, QD
     Route: 065
  9. FALITHROM [Suspect]
     Active Substance: PHENPROCOUMON
     Indication: Anticoagulant therapy
     Dosage: 1 DOSAGE FORM, QD
     Route: 065
  10. CITRIC ACID [Suspect]
     Active Substance: CITRIC ACID MONOHYDRATE
     Dosage: 2.06 GRAM
     Route: 065

REACTIONS (6)
  - Intestinal haemorrhage [Unknown]
  - Haemorrhage [Unknown]
  - Gastric haemorrhage [Unknown]
  - Skin discolouration [Unknown]
  - Pain [Unknown]
  - Prothrombin time prolonged [Not Recovered/Not Resolved]
